FAERS Safety Report 9773690 (Version 1)
Quarter: 2013Q4

REPORT INFORMATION
  Report Type: Spontaneous
  Country: US (occurrence: US)
  Receive Date: 20131219
  Receipt Date: 20131219
  Transmission Date: 20140711
  Serious: No
  Sender: FDA-Public Use
  Company Number: US-009507513-1311USA000338

PATIENT
  Age: 29 Year
  Sex: Female
  Weight: 61.22 kg

DRUGS (3)
  1. NUVARING [Suspect]
     Indication: CONTRACEPTION
     Dosage: 1 RING X 3 WKS FOLLOWED BY 1 WK FREE BREAK
     Route: 067
     Dates: start: 2010
  2. LEXAPRO [Concomitant]
  3. PROBIOTICS (UNSPECIFIED) [Concomitant]

REACTIONS (1)
  - Fungal infection [Unknown]
